FAERS Safety Report 13121304 (Version 1)
Quarter: 2017Q1

REPORT INFORMATION
  Report Type: Spontaneous
  Country: US (occurrence: US)
  Receive Date: 20170117
  Receipt Date: 20170117
  Transmission Date: 20170428
  Serious: Yes (Hospitalization, Other)
  Sender: FDA-Public Use
  Company Number: US-TARO PHARMACEUTICALS USA.,INC-2017SUN00006

PATIENT
  Age: 64 Year
  Sex: Male

DRUGS (4)
  1. WARFARIN [Interacting]
     Active Substance: WARFARIN
     Dosage: 40 MG, WEEKLY
     Route: 065
     Dates: start: 2015
  2. LEDIPASVIR/SOFOSBUVIR (LDV/SOF) [Interacting]
     Active Substance: LEDIPASVIR\SOFOSBUVIR
     Indication: CHRONIC HEPATITIS C
     Dosage: UNK
     Route: 065
     Dates: start: 2015
  3. WARFARIN [Suspect]
     Active Substance: WARFARIN
     Indication: ATRIAL FIBRILLATION
     Dosage: 30 MG, WEEKLY
     Route: 065
     Dates: start: 2011
  4. WARFARIN [Interacting]
     Active Substance: WARFARIN
     Dosage: 35 MG, WEEKLY
     Route: 065
     Dates: start: 2015

REACTIONS (8)
  - Haematuria [Unknown]
  - International normalised ratio decreased [Recovered/Resolved]
  - Haemoglobin decreased [None]
  - Overdose [Unknown]
  - Drug interaction [Unknown]
  - International normalised ratio increased [Unknown]
  - Upper gastrointestinal haemorrhage [Unknown]
  - Accidental overdose [None]
